FAERS Safety Report 6201258-9 (Version None)
Quarter: 2009Q2

REPORT INFORMATION
  Report Type: 
  Country: None (occurrence: None)
  Receive Date: 20090526
  Receipt Date: 20090513
  Transmission Date: 20091009
  Serious: Yes (Other)
  Sender: FDA-Public Use
  Company Number: PHHY2009JP18874

PATIENT
  Age: 60 Year
  Sex: Male

DRUGS (2)
  1. DIOVAN [Suspect]
     Route: 048
  2. DRUG THERAPY NOS [Concomitant]

REACTIONS (1)
  - RESTLESS LEGS SYNDROME [None]
